FAERS Safety Report 9682493 (Version 2)
Quarter: 2013Q4

REPORT INFORMATION
  Report Type: Spontaneous
  Country: DE (occurrence: DE)
  Receive Date: 20131112
  Receipt Date: 20131112
  Transmission Date: 20140711
  Serious: Yes (Hospitalization)
  Sender: FDA-Public Use
  Company Number: DE-JNJFOC-20130811049

PATIENT
  Age: 24 Year
  Sex: Male
  Weight: 75 kg

DRUGS (5)
  1. XEPLION [Suspect]
     Indication: SCHIZOPHRENIA, PARANOID TYPE
     Route: 030
     Dates: start: 20130806, end: 20130806
  2. XEPLION [Suspect]
     Indication: SCHIZOPHRENIA, PARANOID TYPE
     Route: 030
     Dates: start: 20130820
  3. ZUCLOPENTHIXOL HYDROCHLORIDE [Suspect]
     Indication: IMPULSE-CONTROL DISORDER
     Route: 030
     Dates: start: 20130820, end: 20130820
  4. ZUCLOPENTHIXOL HYDROCHLORIDE [Suspect]
     Indication: IMPULSE-CONTROL DISORDER
     Route: 030
     Dates: start: 20130806, end: 20130806
  5. ZUCLOPENTHIXOL HYDROCHLORIDE [Suspect]
     Indication: IMPULSE-CONTROL DISORDER
     Route: 030

REACTIONS (3)
  - Inappropriate schedule of drug administration [Unknown]
  - Extrapyramidal disorder [Recovered/Resolved]
  - Overdose [Unknown]
